FAERS Safety Report 5309938-4 (Version None)
Quarter: 2007Q2

REPORT INFORMATION
  Report Type: 
  Country: None (occurrence: None)
  Receive Date: 20070427
  Receipt Date: 20070417
  Transmission Date: 20071010
  Serious: Yes (Hospitalization)
  Sender: FDA-Public Use
  Company Number: US-ELI_LILLY_AND_COMPANY-US200702005702

PATIENT
  Age: 89 Year
  Sex: Female
  Weight: 40.589 kg

DRUGS (9)
  1. FORTEO [Suspect]
     Indication: OSTEOPOROSIS
     Dosage: 20 UG, UNK
     Dates: start: 20060908
  2. CALCIUM CHLORIDE [Concomitant]
  3. NORVASC [Concomitant]
     Indication: BLOOD PRESSURE
  4. PROTONIX [Concomitant]
  5. AGGRENOX [Concomitant]
  6. POLYETHYLENE GLYCOL [Concomitant]
     Indication: BOWEL MOVEMENT IRREGULARITY
  7. ATIVAN [Concomitant]
  8. PHENERGAN HCL [Concomitant]
  9. MIRALAX [Concomitant]

REACTIONS (7)
  - CONFUSIONAL STATE [None]
  - CYSTITIS [None]
  - FEELING ABNORMAL [None]
  - HYPOKALAEMIA [None]
  - HYPOMAGNESAEMIA [None]
  - TRANSIENT ISCHAEMIC ATTACK [None]
  - VOMITING [None]
